FAERS Safety Report 17031242 (Version 17)
Quarter: 2024Q2

REPORT INFORMATION
  Report Type: Spontaneous
  Country: US (occurrence: US)
  Receive Date: 20191114
  Receipt Date: 20240613
  Transmission Date: 20240716
  Serious: No
  Sender: FDA-Public Use
  Company Number: US-PFIZER INC-2019446983

PATIENT
  Age: 67 Year
  Sex: Female
  Weight: 75 kg

DRUGS (5)
  1. EUCRISA [Suspect]
     Active Substance: CRISABOROLE
     Indication: Dermatitis atopic
     Dosage: APPLY TO SCALP TWICE DAILY
     Route: 061
  2. EUCRISA [Suspect]
     Active Substance: CRISABOROLE
     Indication: Dermatitis
     Dosage: APPLY A THIN LAYER TO AFFECTED AREA
     Route: 061
  3. EUCRISA [Suspect]
     Active Substance: CRISABOROLE
     Dosage: SUPPOSED TO APPLY TWICE DAILY BUT SHE CAN^T DO IT TWICE A DAY
  4. EUCRISA [Suspect]
     Active Substance: CRISABOROLE
     Dosage: APPLY A THIN LAYER TO AFFECTED AREAS TWICE DAILY
     Route: 061
  5. EUCRISA [Suspect]
     Active Substance: CRISABOROLE
     Dosage: APPLY SPARINGLY BID (TWICE A DAY) TO RASH OF SCALP AND BODY
     Route: 061

REACTIONS (4)
  - Therapeutic product effect incomplete [Unknown]
  - Intentional product misuse [Unknown]
  - Headache [Unknown]
  - Alopecia [Unknown]
